FAERS Safety Report 10275186 (Version 1)
Quarter: 2014Q3

REPORT INFORMATION
  Report Type: Spontaneous
  Country: US (occurrence: US)
  Receive Date: 20140703
  Receipt Date: 20140703
  Transmission Date: 20150326
  Serious: Yes (Hospitalization)
  Sender: FDA-Public Use
  Company Number: US-BIOGENIDEC-2014BI064313

PATIENT
  Sex: Female

DRUGS (2)
  1. AVONEX [Suspect]
     Active Substance: INTERFERON BETA-1A
     Indication: MULTIPLE SCLEROSIS
     Route: 030
     Dates: start: 20121201
  2. AVONEX [Suspect]
     Active Substance: INTERFERON BETA-1A
     Indication: MULTIPLE SCLEROSIS
     Route: 030

REACTIONS (20)
  - Musculoskeletal disorder [Unknown]
  - Cardiovascular disorder [Unknown]
  - Thermohypoaesthesia [Unknown]
  - Hypoaesthesia [Unknown]
  - Vascular pain [Unknown]
  - Paraesthesia [Unknown]
  - Poor venous access [Unknown]
  - Unwanted awareness during anaesthesia [Unknown]
  - Endoscopy gastrointestinal [Unknown]
  - Contusion [Unknown]
  - Pain in extremity [Unknown]
  - Choking [Unknown]
  - Feeling hot [Unknown]
  - Nausea [Unknown]
  - Vomiting [Unknown]
  - Urticaria [Unknown]
  - Neck pain [Unknown]
  - Pain [Unknown]
  - Vasodilatation [Unknown]
  - Rash macular [Unknown]
